FAERS Safety Report 18057819 (Version 1)
Quarter: 2020Q3

REPORT INFORMATION
  Report Type: Spontaneous
  Country: US (occurrence: US)
  Receive Date: 20200723
  Receipt Date: 20200723
  Transmission Date: 20201103
  Serious: Yes (Other)
  Sender: FDA-Public Use
  Company Number: US-AUROBINDO-AUR-APL-2020-035893

PATIENT
  Age: 55 Year
  Sex: Male

DRUGS (8)
  1. ESTRADIOL. [Suspect]
     Active Substance: ESTRADIOL
     Indication: GENDER REASSIGNMENT THERAPY
     Dosage: 1 MILLIGRAM, ONCE A DAY
     Route: 048
  2. LISINOPRIL. [Concomitant]
     Active Substance: LISINOPRIL
     Indication: PRODUCT USED FOR UNKNOWN INDICATION
     Dosage: UNK
     Route: 065
  3. SPIRONOLACTONE. [Concomitant]
     Active Substance: SPIRONOLACTONE
     Indication: PRODUCT USED FOR UNKNOWN INDICATION
     Dosage: UNK
     Route: 065
  4. PROGESTERONE. [Suspect]
     Active Substance: PROGESTERONE
     Indication: GENDER DYSPHORIA
     Dosage: 100 MILLIGRAM, ONCE A DAY
     Route: 065
  5. ESTRADIOL. [Suspect]
     Active Substance: ESTRADIOL
     Dosage: 4 MILLIGRAM, ONCE A DAY
     Route: 048
  6. ESTRADIOL. [Suspect]
     Active Substance: ESTRADIOL
     Indication: GENDER DYSPHORIA
     Dosage: 2 MILLIGRAM, ONCE A DAY
     Route: 048
  7. IBUPROFEN. [Concomitant]
     Active Substance: IBUPROFEN
     Indication: PRODUCT USED FOR UNKNOWN INDICATION
     Dosage: UNK
     Route: 065
  8. MEDROXYPROGESTERONE [Concomitant]
     Active Substance: MEDROXYPROGESTERONE
     Indication: PRODUCT USED FOR UNKNOWN INDICATION
     Dosage: UNK
     Route: 065

REACTIONS (4)
  - Drug level above therapeutic [Unknown]
  - Transaminases increased [Unknown]
  - Porphyria non-acute [Recovered/Resolved]
  - Unmasking of previously unidentified disease [Recovered/Resolved]
